FAERS Safety Report 6688017 (Version 14)
Quarter: 2013Q3

REPORT INFORMATION
  Report Type: Spontaneous
  Country: US (occurrence: US)
  Receive Date: 20080701
  Receipt Date: 20130809
  Transmission Date: 20140515
  Serious: Yes (Death, Hospitalization, Other)
  Sender: FDA-Public Use
  Company Number: PHEH2008US05592

PATIENT
  Age: 49 Year
  Sex: Female
  Weight: 58.5 kg

DRUGS (42)
  1. ZOMETA [Suspect]
     Dosage: 4 MG
     Dates: end: 20060804
  2. FASLODEX [Concomitant]
     Dates: start: 200511, end: 200608
  3. ABRAXANE [Concomitant]
     Dosage: 485 MG
     Dates: end: 200705
  4. AVASTIN [Concomitant]
     Dosage: 1065 MG
     Dates: end: 200705
  5. KYTRIL [Concomitant]
  6. BENADRYL ^PFIZER WARNER-LAMBERT^ [Concomitant]
  7. RANITIDINE [Concomitant]
     Dosage: 25 MG
  8. DOXORUBICIN [Concomitant]
  9. IXABEPILONE [Concomitant]
     Dates: start: 20080523
  10. TAMOXIFEN [Concomitant]
     Dosage: 20 MG
  11. DOXIL [Concomitant]
  12. COUMADIN ^BOOTS^ [Concomitant]
     Indication: DEEP VEIN THROMBOSIS
  13. NAVELBINE ^ASTA MEDICA^ [Concomitant]
     Dosage: 40 MG
  14. DURAGESIC [Concomitant]
  15. OXYCONTIN [Concomitant]
     Dosage: 40 MG
  16. LORTAB [Concomitant]
  17. POTASSIUM [Concomitant]
  18. NEUPOGEN [Concomitant]
  19. NEULASTA [Concomitant]
     Dosage: 6 MG
     Route: 058
  20. XELODA [Concomitant]
  21. AMPICILLIN [Concomitant]
     Indication: OSTEONECROSIS
  22. ARANESP [Concomitant]
  23. CLEOCIN [Concomitant]
     Dosage: 300 MG
     Route: 048
  24. LEVAQUIN [Concomitant]
     Dosage: 500 MG, QD
     Route: 048
  25. TRANSDERM V [Concomitant]
     Dosage: 1.5 MG
     Route: 062
  26. PROCHLORPERAZINE [Concomitant]
     Dosage: 25 MG
     Route: 054
  27. PROCRIT [Concomitant]
     Dosage: 40000 M,
  28. REGLAN [Concomitant]
     Dosage: 10 MG,
     Route: 048
  29. DEXAMETHASONE [Concomitant]
     Dosage: 4 MG,
     Route: 048
  30. PROTONIX ^PHARMACIA^ [Concomitant]
     Dosage: 40 MG,
     Route: 048
  31. CIPRO ^MILES^ [Concomitant]
     Dosage: 750 MG,
     Route: 048
  32. RADIATION THERAPY [Concomitant]
  33. PAXIL [Concomitant]
     Dosage: 20 MG, QD
  34. TRAZODONE [Concomitant]
     Dosage: 50 MG
  35. PERCOCET [Concomitant]
     Indication: PAIN
  36. OXYIR [Concomitant]
     Dosage: 5 MG
  37. ACTIQ [Concomitant]
     Dosage: 400 MG
  38. MARIJUANA [Concomitant]
     Indication: PAIN
  39. PEPCID AC [Concomitant]
  40. BENTYL [Concomitant]
  41. FLAGYL [Concomitant]
  42. GYNAZOLE [Concomitant]

REACTIONS (64)
  - Cardiopulmonary failure [Fatal]
  - Cardiomegaly [Fatal]
  - Myocardial infarction [Fatal]
  - Chronic obstructive pulmonary disease [Unknown]
  - Dyspnoea [Unknown]
  - Malignant neoplasm progression [Fatal]
  - Metastases to liver [Fatal]
  - Metastases to central nervous system [Fatal]
  - Metastases to spine [Fatal]
  - Metastases to chest wall [Fatal]
  - Metastases to bone [Fatal]
  - Metastases to ovary [Fatal]
  - Loss of consciousness [Unknown]
  - Unresponsive to stimuli [Unknown]
  - Anhedonia [Unknown]
  - Osteonecrosis of jaw [Unknown]
  - Dental caries [Unknown]
  - Injury [Unknown]
  - Pain [Unknown]
  - Pain in jaw [Unknown]
  - Tooth infection [Unknown]
  - Bone disorder [Unknown]
  - Atelectasis [Unknown]
  - Colitis [Unknown]
  - Cervicitis [Unknown]
  - Uterine cervical squamous metaplasia [Unknown]
  - Malignant pleural effusion [Unknown]
  - Pericardial effusion [Unknown]
  - Pneumothorax spontaneous [Unknown]
  - Cardiac disorder [Unknown]
  - Tachyarrhythmia [Unknown]
  - Deep vein thrombosis [Unknown]
  - Cardiac tamponade [Unknown]
  - Constipation [Unknown]
  - Oedema peripheral [Unknown]
  - Hypokalaemia [Unknown]
  - Hypotension [Unknown]
  - Arthritis [Unknown]
  - Dehydration [Recovered/Resolved]
  - Leiomyoma [Unknown]
  - Depression [Unknown]
  - Nervousness [Unknown]
  - Anxiety [Unknown]
  - Anaemia [Unknown]
  - Productive cough [Unknown]
  - Weight decreased [Unknown]
  - Osteopenia [Unknown]
  - Gastrooesophageal reflux disease [Unknown]
  - Rash [Unknown]
  - Loose tooth [Unknown]
  - Toothache [Unknown]
  - Asthenia [Unknown]
  - Abdominal pain [Unknown]
  - Dizziness [Unknown]
  - Headache [Unknown]
  - Leukocytosis [Unknown]
  - Gastritis [Unknown]
  - Urinary incontinence [Unknown]
  - Cough [Unknown]
  - Visual acuity reduced [Unknown]
  - Gardnerella infection [Unknown]
  - Lymphadenopathy [Unknown]
  - Scoliosis [Unknown]
  - Compression fracture [Unknown]
